FAERS Safety Report 5905170-1 (Version None)
Quarter: 2008Q4

REPORT INFORMATION
  Report Type: 
  Country: None (occurrence: None)
  Receive Date: 20081001
  Receipt Date: 20080919
  Transmission Date: 20090506
  Serious: Yes (Other)
  Sender: FDA-Public Use
  Company Number: US-JNJCH-2008024807

PATIENT
  Sex: Male
  Weight: 83.9 kg

DRUGS (3)
  1. BENADRYL [Suspect]
     Indication: MULTIPLE ALLERGIES
     Route: 048
  2. PEPCID AC [Suspect]
     Indication: GASTROOESOPHAGEAL REFLUX DISEASE
     Route: 048
     Dates: start: 20071201, end: 20080919
  3. ZOCOR [Concomitant]
     Route: 065

REACTIONS (4)
  - ABDOMINAL PAIN UPPER [None]
  - DIARRHOEA HAEMORRHAGIC [None]
  - NAUSEA [None]
  - VOMITING [None]
